FAERS Safety Report 4915170-6 (Version None)
Quarter: 2006Q1

REPORT INFORMATION
  Report Type: 
  Country: None (occurrence: None)
  Receive Date: 20060216
  Receipt Date: 20060216
  Transmission Date: 20060701
  Serious: Yes (Hospitalization)
  Sender: FDA-Public Use
  Company Number: None

PATIENT
  Sex: Female
  Weight: 81.6475 kg

DRUGS (3)
  1. BACTRIM [Suspect]
     Indication: URINARY TRACT INFECTION
     Dosage: UNKNOWN, PO PRIOR TO ADMISSION
     Route: 048
  2. ZIAC [Concomitant]
  3. LOTREL [Concomitant]

REACTIONS (2)
  - THROAT TIGHTNESS [None]
  - URTICARIA [None]
